FAERS Safety Report 7737314-3 (Version None)
Quarter: 2011Q3

REPORT INFORMATION
  Report Type: 
  Country: None (occurrence: None)
  Receive Date: 20110908
  Receipt Date: 20110829
  Transmission Date: 20111222
  Serious: Yes (Hospitalization, Other)
  Sender: FDA-Public Use
  Company Number: US-AMGEN-USASP2011044371

PATIENT
  Age: 69 Year
  Sex: Female

DRUGS (2)
  1. ENBREL [Suspect]
     Indication: PSORIATIC ARTHROPATHY
     Dosage: 25 MG, 2 TIMES/WK
     Dates: start: 20000328
  2. REMICADE [Concomitant]

REACTIONS (6)
  - SICK SINUS SYNDROME [None]
  - VEIN DISORDER [None]
  - MITRAL VALVE PROLAPSE [None]
  - FEELING ABNORMAL [None]
  - SYSTOLIC HYPERTENSION [None]
  - VENOUS OCCLUSION [None]
